FAERS Safety Report 16479982 (Version 1)
Quarter: 2019Q2

REPORT INFORMATION
  Report Type: Spontaneous
  Country: CA (occurrence: CA)
  Receive Date: 20190626
  Receipt Date: 20190626
  Transmission Date: 20190711
  Serious: Yes (Other)
  Sender: FDA-Public Use
  Company Number: CA-TEVA-2019-CA-1067121

PATIENT
  Age: 82 Year
  Sex: Female
  Weight: 76 kg

DRUGS (5)
  1. TRAZODONE [Concomitant]
     Active Substance: TRAZODONE HYDROCHLORIDE
     Route: 065
  2. COVERSYL(PERINDOPRIL ERBUMINE) [Concomitant]
     Route: 065
  3. SPIRINOLACTONE [Concomitant]
     Active Substance: SPIRONOLACTONE
     Route: 065
  4. AMIODARONE HYDROCHLORIDE. [Suspect]
     Active Substance: AMIODARONE HYDROCHLORIDE
     Indication: ATRIAL FIBRILLATION
     Dosage: 200 MILLIGRAM DAILY;
     Route: 048
  5. ATENOL [Concomitant]
     Active Substance: ATENOLOL
     Route: 065

REACTIONS (3)
  - Product substitution issue [Unknown]
  - Palpitations [Unknown]
  - Tachycardia [Unknown]
